FAERS Safety Report 10569917 (Version 3)
Quarter: 2014Q4

REPORT INFORMATION
  Report Type: Spontaneous
  Country: GB (occurrence: GB)
  Receive Date: 20141107
  Receipt Date: 20141209
  Transmission Date: 20150529
  Serious: Yes (Disabling, Other)
  Sender: FDA-Public Use
  Company Number: GB-MICRO LABS LIMITED-BB2014-00897

PATIENT
  Age: 60 Year
  Sex: Female

DRUGS (1)
  1. SIMVASTATIN. [Suspect]
     Active Substance: SIMVASTATIN
     Indication: BLOOD CHOLESTEROL INCREASED
     Dosage: UNK, DOSE REPORTED AS 40(UNITS NOT REPORTED)
     Route: 065

REACTIONS (22)
  - Fatigue [Unknown]
  - Social avoidant behaviour [Unknown]
  - Frustration [Unknown]
  - Abdominal distension [Unknown]
  - Headache [Unknown]
  - Myalgia [Unknown]
  - Impaired work ability [Unknown]
  - Rash [Unknown]
  - Flatulence [Unknown]
  - Flushing [Unknown]
  - Activities of daily living impaired [Unknown]
  - Dizziness [Unknown]
  - Balance disorder [Unknown]
  - Condition aggravated [Unknown]
  - Quality of life decreased [Unknown]
  - Job dissatisfaction [Unknown]
  - Psychiatric symptom [Unknown]
  - Disturbance in social behaviour [Unknown]
  - Muscular weakness [Unknown]
  - Mood altered [Unknown]
  - Symptom masked [Unknown]
  - Insomnia [Unknown]
